FAERS Safety Report 4911394-2 (Version None)
Quarter: 2006Q1

REPORT INFORMATION
  Report Type: 
  Country: None (occurrence: None)
  Receive Date: 20060209
  Receipt Date: 20060128
  Transmission Date: 20060701
  Serious: Yes (Hospitalization)
  Sender: FDA-Public Use
  Company Number: GXKR2006AU00693

PATIENT
  Age: 70 Year
  Sex: Female

DRUGS (4)
  1. FLUVOXAMINE MALEATE [Suspect]
     Indication: DEPRESSION
     Dosage: 200 MG, QD
  2. OXYCODONE HYDROCHLORIDE [Suspect]
     Indication: RADIUS FRACTURE
     Dosage: SEE IMAGE
  3. DICLOFENAC (DICLOFENAC) [Concomitant]
  4. RALOXIFENE HCL [Concomitant]

REACTIONS (9)
  - ATRIAL FIBRILLATION [None]
  - BLOOD CREATINE PHOSPHOKINASE INCREASED [None]
  - CHILLS [None]
  - CLONUS [None]
  - DRUG INTERACTION [None]
  - DYSPHONIA [None]
  - HYPERREFLEXIA [None]
  - MYDRIASIS [None]
  - SEROTONIN SYNDROME [None]
